FAERS Safety Report 24289899 (Version 1)
Quarter: 2024Q3

REPORT INFORMATION
  Report Type: Report from Study
  Country: US (occurrence: None)
  Receive Date: 20240906
  Receipt Date: 20240906
  Transmission Date: 20241017
  Serious: Yes (Death, Other)
  Sender: ASTRAZENECA
  Company Number: 2024A200577

PATIENT
  Age: 29399 Day
  Sex: Male

DRUGS (1)
  1. TAGRISSO [Suspect]
     Active Substance: OSIMERTINIB
     Route: 048

REACTIONS (3)
  - Glioblastoma [Unknown]
  - COVID-19 [Unknown]
  - Death [Fatal]

NARRATIVE: CASE EVENT DATE: 20240830
